FAERS Safety Report 4348410-5 (Version None)
Quarter: 2004Q2

REPORT INFORMATION
  Report Type: 
  Country: None (occurrence: None)
  Receive Date: 20040422
  Receipt Date: 20040414
  Transmission Date: 20050107
  Serious: Yes (Hospitalization)
  Sender: FDA-Public Use
  Company Number: FR-JNJFOC-20040403723

PATIENT
  Age: 65 Year
  Sex: Female
  Weight: 80 kg

DRUGS (5)
  1. REOPRO [Suspect]
     Indication: ANGIOPLASTY
     Dosage: 0.25 MG/KG, INTRAVENOUS : 0.125 MG/KG, 1 IN 24 HOUR, INTRAVENOUS
     Route: 042
     Dates: start: 20040121, end: 20040122
  2. REOPRO [Suspect]
     Indication: ANGIOPLASTY
     Dosage: 0.25 MG/KG, INTRAVENOUS : 0.125 MG/KG, 1 IN 24 HOUR, INTRAVENOUS
     Route: 042
     Dates: start: 20040121
  3. HEPARIN [Concomitant]
  4. CLOPIDOGREL [Concomitant]
  5. ASPIRIN [Concomitant]

REACTIONS (5)
  - CARDIOGENIC SHOCK [None]
  - CORONARY ARTERY STENOSIS [None]
  - HAEMOPTYSIS [None]
  - MYOCARDIAL INFARCTION [None]
  - VENTRICULAR FIBRILLATION [None]
